FAERS Safety Report 9449768 (Version 1)
Quarter: 2013Q3

REPORT INFORMATION
  Report Type: Spontaneous
  Country: MX (occurrence: MX)
  Receive Date: 20130809
  Receipt Date: 20130809
  Transmission Date: 20140515
  Serious: Yes (Other)
  Sender: FDA-Public Use
  Company Number: MX-AMGEN-MEXSP2013055634

PATIENT
  Age: 63 Year
  Sex: Female

DRUGS (1)
  1. PROLIA [Suspect]
     Indication: PRODUCT USED FOR UNKNOWN INDICATION
     Dosage: 60 MG/ML, UNK
     Route: 058

REACTIONS (7)
  - Varicose vein [Unknown]
  - Lower limb fracture [Unknown]
  - Discomfort [Unknown]
  - Muscle spasms [Unknown]
  - Paraesthesia [Unknown]
  - Hypersensitivity [Unknown]
  - Pain in extremity [Unknown]
